FAERS Safety Report 21773266 (Version 2)
Quarter: 2023Q1

REPORT INFORMATION
  Report Type: Spontaneous
  Country: US (occurrence: US)
  Receive Date: 20221223
  Receipt Date: 20230110
  Transmission Date: 20230417
  Serious: No
  Sender: FDA-Public Use
  Company Number: US-JNJFOC-20221209587

PATIENT
  Sex: Female

DRUGS (1)
  1. TREMFYA [Suspect]
     Active Substance: GUSELKUMAB
     Indication: Psoriasis
     Route: 065

REACTIONS (4)
  - Needle issue [Unknown]
  - Accidental exposure to product [Unknown]
  - Product label issue [Unknown]
  - Off label use [Unknown]
